FAERS Safety Report 24285258 (Version 1)
Quarter: 2024Q3

REPORT INFORMATION
  Report Type: Spontaneous
  Country: PL (occurrence: PL)
  Receive Date: 20240905
  Receipt Date: 20240905
  Transmission Date: 20241017
  Serious: Yes (Hospitalization)
  Sender: RANBAXY
  Company Number: PL-SUN PHARMACEUTICAL INDUSTRIES LTD-2024R1-465452

PATIENT
  Age: 69 Year
  Sex: Female

DRUGS (3)
  1. LITHIUM [Suspect]
     Active Substance: LITHIUM
     Indication: Bipolar disorder
     Dosage: UNK (UP TO 500 MG/DAY IN TWO DAILY DOSES)
     Route: 065
  2. LAMOTRIGINE [Concomitant]
     Active Substance: LAMOTRIGINE
     Indication: Bipolar disorder
     Dosage: UNK (UP TO 50 MG/DAY)
     Route: 065
  3. QUETIAPINE [Concomitant]
     Active Substance: QUETIAPINE
     Indication: Bipolar disorder
     Dosage: UNK (UP TO 200 MG/DAY)
     Route: 065

REACTIONS (7)
  - Toxicity to various agents [Recovering/Resolving]
  - Dysarthria [Unknown]
  - Tremor [Unknown]
  - Ataxia [Unknown]
  - Asthenia [Unknown]
  - Disorientation [Unknown]
  - Drug ineffective [Unknown]
